FAERS Safety Report 17064059 (Version 2)
Quarter: 2019Q4

REPORT INFORMATION
  Report Type: Spontaneous
  Country: JP (occurrence: JP)
  Receive Date: 20191122
  Receipt Date: 20191128
  Transmission Date: 20200122
  Serious: Yes (Other)
  Sender: FDA-Public Use
  Company Number: JP-PFIZER INC-2019496579

PATIENT
  Age: 71 Year
  Sex: Male

DRUGS (1)
  1. JZOLOFT [Suspect]
     Active Substance: SERTRALINE HYDROCHLORIDE
     Indication: OBSESSIVE-COMPULSIVE DISORDER
     Dosage: 50 MG, UNK
     Route: 048

REACTIONS (8)
  - Faeces soft [Recovered/Resolved]
  - Anxiety [Unknown]
  - Constipation [Unknown]
  - Thirst [Unknown]
  - Diarrhoea [Recovered/Resolved]
  - Arthralgia [Unknown]
  - Off label use [Unknown]
  - Drug effective for unapproved indication [Unknown]
